FAERS Safety Report 18360856 (Version 3)
Quarter: 2020Q4

REPORT INFORMATION
  Report Type: Spontaneous
  Country: US (occurrence: US)
  Receive Date: 20201008
  Receipt Date: 20201020
  Transmission Date: 20210114
  Serious: No
  Sender: FDA-Public Use
  Company Number: US-PFIZER INC-2020383156

PATIENT
  Age: 57 Year
  Sex: Female

DRUGS (2)
  1. SODIUM BICARBONATE. [Suspect]
     Active Substance: SODIUM BICARBONATE
     Indication: ANAESTHESIA
     Dosage: UNK (8.4% SODIUM BICARBONATE IS MIXED WITH THE OTHER PRODUCT (LIDOCAINE 1% AND EPINEPHRINE.)
     Route: 058
  2. EPINEPHRINE/LIDOCAINE HYDROCHLORIDE [Suspect]
     Active Substance: EPINEPHRINE\LIDOCAINE HYDROCHLORIDE
     Indication: ANAESTHESIA
     Dosage: UNK, [.5MLS LIDOCAINE HCL MIXED WITH SODIUM BICARB SUBCUTANEOUS INJECTION FOR A BIOPSY]
     Route: 058
     Dates: start: 20201002

REACTIONS (3)
  - Injection site erythema [Unknown]
  - Injection site pain [Unknown]
  - Injection site urticaria [Recovered/Resolved]

NARRATIVE: CASE EVENT DATE: 20201002
